FAERS Safety Report 14108387 (Version 1)
Quarter: 2017Q4

REPORT INFORMATION
  Report Type: Spontaneous
  Country: JP (occurrence: JP)
  Receive Date: 20171019
  Receipt Date: 20171019
  Transmission Date: 20180321
  Serious: Yes (Hospitalization, Other)
  Sender: FDA-Public Use
  Company Number: JP-PFIZER INC-2017450848

PATIENT
  Age: 46 Year
  Sex: Male

DRUGS (1)
  1. CELECOX [Suspect]
     Active Substance: CELECOXIB
     Dosage: UNK, UNKNOWN FREQ
     Route: 048

REACTIONS (5)
  - Suicide attempt [Unknown]
  - Altered state of consciousness [Unknown]
  - Intentional overdose [Unknown]
  - Blood pressure decreased [Unknown]
  - Infection [Unknown]
